FAERS Safety Report 7423142-5 (Version None)
Quarter: 2011Q2

REPORT INFORMATION
  Report Type: 
  Country: None (occurrence: None)
  Receive Date: 20110419
  Receipt Date: 20110412
  Transmission Date: 20111010
  Serious: Yes (Death, Hospitalization)
  Sender: FDA-Public Use
  Company Number: US-JNJFOC-20100704741

PATIENT
  Sex: Male
  Weight: 94.5 kg

DRUGS (29)
  1. PAXIL [Concomitant]
     Indication: PRODUCT USED FOR UNKNOWN INDICATION
     Route: 065
  2. DEXAMETHASONE [Suspect]
     Indication: MULTIPLE MYELOMA
     Route: 048
  3. BACTRIM [Concomitant]
     Indication: PRODUCT USED FOR UNKNOWN INDICATION
     Route: 042
  4. DOPAMINE HCL [Concomitant]
     Indication: PRODUCT USED FOR UNKNOWN INDICATION
     Route: 065
  5. OXYCONTIN [Concomitant]
     Indication: PRODUCT USED FOR UNKNOWN INDICATION
     Route: 065
  6. ESERINE [Concomitant]
     Indication: PRODUCT USED FOR UNKNOWN INDICATION
     Route: 065
  7. NOVOLOG [Concomitant]
     Indication: PRODUCT USED FOR UNKNOWN INDICATION
     Route: 065
  8. VORICONAZOLE [Concomitant]
     Indication: PRODUCT USED FOR UNKNOWN INDICATION
     Route: 048
  9. EPOGEN [Concomitant]
     Indication: PRODUCT USED FOR UNKNOWN INDICATION
     Route: 065
  10. VELCADE [Suspect]
     Indication: MULTIPLE MYELOMA
     Route: 042
  11. ACYCLOVIR [Concomitant]
     Indication: PRODUCT USED FOR UNKNOWN INDICATION
     Route: 065
  12. VANCOMYCIN [Concomitant]
     Indication: PRODUCT USED FOR UNKNOWN INDICATION
     Route: 042
  13. LEVOPHED [Concomitant]
     Indication: PRODUCT USED FOR UNKNOWN INDICATION
     Route: 065
  14. LOVASTATIN [Concomitant]
     Indication: PRODUCT USED FOR UNKNOWN INDICATION
     Route: 065
  15. AMIODARONE [Concomitant]
     Indication: PRODUCT USED FOR UNKNOWN INDICATION
     Route: 065
  16. PROTONIX [Concomitant]
     Indication: PRODUCT USED FOR UNKNOWN INDICATION
     Route: 065
  17. COLACE [Concomitant]
     Indication: PRODUCT USED FOR UNKNOWN INDICATION
     Route: 065
  18. HYDROCHLOROTHIAZIDE [Concomitant]
     Indication: PRODUCT USED FOR UNKNOWN INDICATION
     Route: 065
  19. LYRICA [Concomitant]
     Indication: PRODUCT USED FOR UNKNOWN INDICATION
     Route: 065
  20. PREDNISONE [Concomitant]
     Indication: PRODUCT USED FOR UNKNOWN INDICATION
     Route: 065
  21. PRILOSEC [Concomitant]
     Indication: PRODUCT USED FOR UNKNOWN INDICATION
     Route: 048
  22. ADVICOR [Concomitant]
     Indication: PRODUCT USED FOR UNKNOWN INDICATION
     Route: 048
  23. TRAZODONE [Concomitant]
     Indication: PRODUCT USED FOR UNKNOWN INDICATION
     Route: 048
  24. DOXIL [Suspect]
     Indication: MULTIPLE MYELOMA
     Route: 042
  25. CYCLOPHOSPHAMIDE [Suspect]
     Indication: MULTIPLE MYELOMA
     Route: 042
  26. PROPOFOL [Concomitant]
     Indication: PRODUCT USED FOR UNKNOWN INDICATION
     Route: 065
  27. ASPIRIN [Concomitant]
     Indication: PRODUCT USED FOR UNKNOWN INDICATION
     Route: 065
  28. FLOMAX [Concomitant]
     Indication: PRODUCT USED FOR UNKNOWN INDICATION
     Route: 065
  29. DESYREL [Concomitant]
     Indication: PRODUCT USED FOR UNKNOWN INDICATION
     Route: 065

REACTIONS (12)
  - PNEUMONIA [None]
  - PNEUMONITIS CHEMICAL [None]
  - WEIGHT BEARING DIFFICULTY [None]
  - DIFFUSE ALVEOLAR DAMAGE [None]
  - PNEUMONIA FUNGAL [None]
  - PLEURAL EFFUSION [None]
  - ACUTE RESPIRATORY DISTRESS SYNDROME [None]
  - DEHYDRATION [None]
  - ABASIA [None]
  - ATELECTASIS [None]
  - ANAEMIA [None]
  - HEPATIC ENZYME INCREASED [None]
